FAERS Safety Report 6283075-7 (Version None)
Quarter: 2009Q3

REPORT INFORMATION
  Report Type: 
  Country: None (occurrence: None)
  Receive Date: 20090724
  Receipt Date: 20090715
  Transmission Date: 20100115
  Serious: Yes (Death, Hospitalization)
  Sender: FDA-Public Use
  Company Number: A0698894A

PATIENT
  Age: 46 Year
  Sex: Male
  Weight: 136.4 kg

DRUGS (2)
  1. AVANDIA [Suspect]
     Route: 048
     Dates: start: 20010815, end: 20051101
  2. AVANDAMET [Suspect]
     Route: 048
     Dates: start: 20040716, end: 20060222

REACTIONS (6)
  - ANXIETY [None]
  - CARDIAC FAILURE CONGESTIVE [None]
  - CARDIOMYOPATHY [None]
  - DEATH [None]
  - MYOCARDIAL INFARCTION [None]
  - PAIN [None]
